FAERS Safety Report 9291492 (Version 4)
Quarter: 2014Q1

REPORT INFORMATION
  Report Type: Spontaneous
  Country: US (occurrence: US)
  Receive Date: 20130515
  Receipt Date: 20140110
  Transmission Date: 20141002
  Serious: Yes (Hospitalization, Disabling, Other)
  Sender: FDA-Public Use
  Company Number: US-009507513-1305USA004865

PATIENT
  Age: 65 Year
  Sex: Male
  Weight: 106.12 kg

DRUGS (8)
  1. ISENTRESS [Suspect]
     Indication: HIV INFECTION
     Dosage: 400 MG/ 2 A DAY
     Route: 048
     Dates: start: 201103
  2. LEXIVA [Concomitant]
  3. LAMIVUDINE [Concomitant]
  4. ATORVASTATIN [Concomitant]
     Dosage: 40 MG, UNK
     Route: 048
     Dates: start: 201111
  5. LOSARTAN POTASSIUM TABLETS [Concomitant]
     Indication: HYPERTENSION
     Dosage: 50 MG, UNK
     Route: 048
     Dates: start: 201103
  6. NIACIN [Concomitant]
  7. EFFIENT [Concomitant]
     Indication: ARTERIOSCLEROSIS CORONARY ARTERY
     Dosage: 5 MG, UNK
     Route: 048
     Dates: start: 201103
  8. METFORMIN [Concomitant]
     Indication: DIABETES MELLITUS
     Dosage: 1 G, UNK
     Dates: start: 2009

REACTIONS (10)
  - Ankle fracture [Recovered/Resolved]
  - Multiple fractures [Recovered/Resolved]
  - Carotid endarterectomy [Unknown]
  - Ankle operation [Recovered/Resolved]
  - Epistaxis [Recovering/Resolving]
  - Walking aid user [Recovering/Resolving]
  - Cast application [Unknown]
  - Foot prosthesis user [Not Recovered/Not Resolved]
  - Joint swelling [Not Recovered/Not Resolved]
  - Arthralgia [Not Recovered/Not Resolved]
